FAERS Safety Report 18028872 (Version 2)
Quarter: 2020Q3

REPORT INFORMATION
  Report Type: Report from Study
  Country: DE (occurrence: DE)
  Receive Date: 20200716
  Receipt Date: 20200826
  Transmission Date: 20201103
  Serious: Yes (Hospitalization, Other)
  Sender: FDA-Public Use
  Company Number: DE-BRISTOL-MYERS SQUIBB COMPANY-BMS-2020-053773

PATIENT
  Age: 64 Year
  Sex: Male
  Weight: 110 kg

DRUGS (5)
  1. IPILIMUMAB [Suspect]
     Active Substance: IPILIMUMAB
     Indication: MALIGNANT MELANOMA
     Dosage: 330 UNK, Q3WK
     Route: 065
     Dates: start: 20190116
  2. NIVOLUMAB [Suspect]
     Active Substance: NIVOLUMAB
     Indication: MALIGNANT MELANOMA
     Dosage: 110 MILLIGRAM, Q3WK
     Route: 042
     Dates: start: 20190116
  3. NIVOLUMAB [Suspect]
     Active Substance: NIVOLUMAB
     Dosage: 480 MILLIGRAM, Q3WK+1 MONO
     Route: 042
     Dates: start: 20190116
  4. IPILIMUMAB [Suspect]
     Active Substance: IPILIMUMAB
     Dosage: 315.6 UNK, Q3WK
     Route: 065
     Dates: start: 20190116
  5. NIVOLUMAB [Suspect]
     Active Substance: NIVOLUMAB
     Dosage: 105.2 MILLIGRAM, Q3WK + 1 DOSE OF MONO
     Route: 042
     Dates: start: 20190116, end: 20190425

REACTIONS (8)
  - Renal neoplasm [Unknown]
  - Metastases to lymph nodes [Unknown]
  - Tinnitus [Recovered/Resolved]
  - Diarrhoea [Recovered/Resolved]
  - Sarcoidosis [Unknown]
  - Gastrointestinal infection [Unknown]
  - Respiratory disorder [Not Recovered/Not Resolved]
  - Seroma [Unknown]

NARRATIVE: CASE EVENT DATE: 20190120
